FAERS Safety Report 8451386-2 (Version None)
Quarter: 2012Q2

REPORT INFORMATION
  Report Type: 
  Country: None (occurrence: None)
  Receive Date: 20120620
  Receipt Date: 20120227
  Transmission Date: 20120825
  Serious: No
  Sender: FDA-Public Use
  Company Number: US-VERTEX PHARMACEUTICALS INC.-AE-2012-002849

PATIENT
  Sex: Male
  Weight: 68.1 kg

DRUGS (3)
  1. RIBAPAC [Concomitant]
     Indication: HEPATITIS C
     Route: 048
     Dates: start: 20120105
  2. PEGINTERFERON ALFA-2A [Concomitant]
     Indication: HEPATITIS C
     Route: 058
  3. INCIVEK [Suspect]
     Indication: HEPATITIS C
     Route: 048
     Dates: start: 20120105

REACTIONS (2)
  - INFLUENZA LIKE ILLNESS [None]
  - COUGH [None]
